FAERS Safety Report 8537021-3 (Version None)
Quarter: 2012Q3

REPORT INFORMATION
  Report Type: 
  Country: None (occurrence: None)
  Receive Date: 20120713
  Receipt Date: 20120628
  Transmission Date: 20120928
  Serious: Yes (Hospitalization)
  Sender: FDA-Public Use
  Company Number: DSJ-2012-11750

PATIENT
  Age: 64 Year
  Sex: Male

DRUGS (4)
  1. COMELIAN (DILAZEP DIHYDROCHLORIDE) (DILAZEP DIHYDROCHLORIDE) [Concomitant]
  2. ALLOPURINOL [Concomitant]
  3. OLMESARTAN MEDOXOMIL [Suspect]
     Indication: HYPERTENSION
     Dosage: 20 MG, PER ORAL
     Route: 048
     Dates: end: 20120325
  4. REZALTAS (OLMESARTAN MEDOXOMIL/AZELNIDIPINE) (TABLET) [Suspect]
     Indication: HYPERTENSION
     Dosage: 20MG/16MG, PER ORAL
     Route: 048
     Dates: end: 20120325

REACTIONS (2)
  - DIARRHOEA [None]
  - DUODENITIS [None]
